FAERS Safety Report 6454115-7 (Version None)
Quarter: 2009Q4

REPORT INFORMATION
  Report Type: 
  Country: None (occurrence: None)
  Receive Date: 20091124
  Receipt Date: 20091118
  Transmission Date: 20100525
  Serious: Yes (Hospitalization, Disabling)
  Sender: FDA-Public Use
  Company Number: US-MERCK-0903USA02544

PATIENT
  Age: 55 Year
  Sex: Female
  Weight: 60 kg

DRUGS (9)
  1. FOSAMAX [Suspect]
     Indication: OSTEOPENIA
     Route: 048
     Dates: start: 20010401, end: 20070101
  2. FOSAMAX [Suspect]
     Route: 048
     Dates: start: 19950901
  3. FOSAMAX [Suspect]
     Route: 048
     Dates: end: 20010301
  4. FOSAMAX [Suspect]
     Route: 048
     Dates: start: 19980301
  5. FOSAMAX [Suspect]
     Indication: OSTEOPOROSIS
     Route: 048
     Dates: start: 20010401, end: 20070101
  6. FOSAMAX [Suspect]
     Route: 048
     Dates: start: 19950901
  7. FOSAMAX [Suspect]
     Route: 048
     Dates: end: 20010301
  8. FOSAMAX [Suspect]
     Route: 048
     Dates: start: 19980301
  9. FOSAMAX PLUS D [Suspect]
     Indication: OSTEOPENIA
     Route: 048
     Dates: start: 20070801, end: 20080421

REACTIONS (54)
  - ANXIETY [None]
  - ARTHRALGIA [None]
  - ARTHRITIS [None]
  - BACK PAIN [None]
  - BLOOD CHOLESTEROL INCREASED [None]
  - BONE DISORDER [None]
  - BONE PAIN [None]
  - BUNION [None]
  - CERVICAL SPINAL STENOSIS [None]
  - CHEST DISCOMFORT [None]
  - CHEST PAIN [None]
  - CHOLELITHIASIS [None]
  - CONSTIPATION [None]
  - COUGH [None]
  - CYSTITIS HAEMORRHAGIC [None]
  - DRUG HYPERSENSITIVITY [None]
  - DYSPNOEA [None]
  - ECCHYMOSIS [None]
  - EXOSTOSIS [None]
  - FALL [None]
  - FEMUR FRACTURE [None]
  - GAIT DISTURBANCE [None]
  - GASTROOESOPHAGEAL REFLUX DISEASE [None]
  - HAEMORRHOIDS [None]
  - HEADACHE [None]
  - HEART SOUNDS ABNORMAL [None]
  - HEPATIC ENZYME INCREASED [None]
  - HEPATIC STEATOSIS [None]
  - HYPERCALCAEMIA [None]
  - HYPERLIPIDAEMIA [None]
  - INCREASED TENDENCY TO BRUISE [None]
  - INSOMNIA [None]
  - LENTIGO MALIGNA STAGE UNSPECIFIED [None]
  - LIMB DISCOMFORT [None]
  - LUNG NEOPLASM [None]
  - MELANOSIS COLI [None]
  - METASTASES TO BONE [None]
  - MITRAL VALVE INCOMPETENCE [None]
  - MUSCLE SPASMS [None]
  - MYALGIA [None]
  - MYELOPATHY [None]
  - NECK PAIN [None]
  - NODULE [None]
  - OCCIPITAL NEURALGIA [None]
  - PALPITATIONS [None]
  - RADICULOPATHY [None]
  - RENAL FAILURE CHRONIC [None]
  - RHINITIS ALLERGIC [None]
  - SPINAL OSTEOARTHRITIS [None]
  - URINARY TRACT INFECTION [None]
  - URTICARIA [None]
  - VERTIGO [None]
  - VISION BLURRED [None]
  - WEIGHT INCREASED [None]
